FAERS Safety Report 15075239 (Version 1)
Quarter: 2018Q2

REPORT INFORMATION
  Report Type: Spontaneous
  Country: US (occurrence: US)
  Receive Date: 20180627
  Receipt Date: 20180627
  Transmission Date: 20180711
  Serious: Yes (Hospitalization, Other)
  Sender: FDA-Public Use
  Company Number: US-SAOL THERAPEUTICS-2017SAO03546

PATIENT
  Sex: Male
  Weight: 47.17 kg

DRUGS (2)
  1. LIORESAL [Suspect]
     Active Substance: BACLOFEN
     Indication: MUSCLE SPASTICITY
     Dosage: 264.9 ?G, \DAY
     Route: 037
  2. LIORESAL [Suspect]
     Active Substance: BACLOFEN
     Dosage: 264.6 ?G, \DAY
     Route: 037

REACTIONS (3)
  - Device issue [Recovered/Resolved]
  - Implant site extravasation [Recovered/Resolved]
  - Implant site pain [Recovered/Resolved]
